FAERS Safety Report 8910576 (Version 1)
Quarter: 2012Q4

REPORT INFORMATION
  Report Type: 
  Country: US (occurrence: US)
  Receive Date: 20121114
  Receipt Date: 20121114
  Transmission Date: 20130627
  Serious: Yes (Other)
  Sender: FDA-Public Use
  Company Number: US-GLAXOSMITHKLINE-A1000330A

PATIENT
  Age: 80 Year
  Sex: Female

DRUGS (2)
  1. ADVAIR [Suspect]
     Indication: ASTHMA
     Dosage: 2PUFF Twice per day
     Route: 055
  2. LEXAPRO [Concomitant]

REACTIONS (3)
  - Foreign body aspiration [Recovering/Resolving]
  - Drug administration error [Unknown]
  - Off label use [Unknown]
